FAERS Safety Report 7493980-1 (Version None)
Quarter: 2011Q2

REPORT INFORMATION
  Report Type: 
  Country: None (occurrence: None)
  Receive Date: 20110513
  Receipt Date: 20110513
  Transmission Date: 20111010
  Serious: No
  Sender: FDA-Public Use
  Company Number: None

PATIENT
  Sex: Female
  Weight: 54.5 kg

DRUGS (2)
  1. YAZ [Suspect]
  2. DROSPIRENONE AND ETHINYL ESTRADIOL [Suspect]
     Indication: CONTRACEPTION
     Dosage: 3MG DROSPIRENONE 0.02 MG ESTRADIOL DAILY ORAL
     Route: 048
     Dates: start: 20110404, end: 20110427

REACTIONS (2)
  - ASTHENIA [None]
  - PRODUCT SUBSTITUTION ISSUE [None]
